FAERS Safety Report 19113203 (Version 1)
Quarter: 2021Q2

REPORT INFORMATION
  Report Type: Report from Study
  Country: US (occurrence: US)
  Receive Date: 20210408
  Receipt Date: 20210408
  Transmission Date: 20210717
  Serious: Yes (Other)
  Sender: FDA-Public Use
  Company Number: US-TAKEDA-2021TUS017363

PATIENT
  Sex: Male
  Weight: 73 kg

DRUGS (1)
  1. VEDOLIZUMAB [Suspect]
     Active Substance: VEDOLIZUMAB
     Indication: CROHN^S DISEASE
     Dosage: 300 MILLIGRAM
     Route: 042

REACTIONS (4)
  - Back injury [Unknown]
  - Product use issue [Unknown]
  - Upper-airway cough syndrome [Unknown]
  - Osteochondrosis [Unknown]
